FAERS Safety Report 10041048 (Version 2)
Quarter: 2014Q2

REPORT INFORMATION
  Report Type: Spontaneous
  Country: JP (occurrence: JP)
  Receive Date: 20140327
  Receipt Date: 20140404
  Transmission Date: 20141212
  Serious: Yes (Hospitalization)
  Sender: FDA-Public Use
  Company Number: JP-ASTRAZENECA-2014SE19792

PATIENT
  Age: 78 Year
  Sex: Male

DRUGS (3)
  1. TENORMIN [Suspect]
     Route: 048
     Dates: end: 20130112
  2. RYTHMODAN [Suspect]
     Route: 065
  3. AMLODIN [Suspect]
     Route: 048

REACTIONS (4)
  - Pyrexia [Recovered/Resolved]
  - Hyperkalaemia [Recovered/Resolved]
  - Influenza [Recovered/Resolved]
  - Bradycardia [Recovered/Resolved]
